FAERS Safety Report 15270189 (Version 2)
Quarter: 2019Q1

REPORT INFORMATION
  Report Type: Spontaneous
  Country: US (occurrence: US)
  Receive Date: 20180813
  Receipt Date: 20190211
  Transmission Date: 20190417
  Serious: No
  Sender: FDA-Public Use
  Company Number: US-PFIZER INC-2018321732

PATIENT
  Age: 73 Year
  Sex: Female

DRUGS (1)
  1. XELJANZ XR [Suspect]
     Active Substance: TOFACITINIB CITRATE
     Indication: RHEUMATOID ARTHRITIS
     Dosage: 11 MG, DAILY (1 DAILY)
     Route: 048
     Dates: start: 201709

REACTIONS (6)
  - Rhinorrhoea [Unknown]
  - Throat irritation [Unknown]
  - Gingivitis [Unknown]
  - Sinusitis [Unknown]
  - Ear pain [Unknown]
  - Gingival pain [Unknown]
